FAERS Safety Report 17861804 (Version 2)
Quarter: 2020Q3

REPORT INFORMATION
  Report Type: Report from Study
  Country: BD (occurrence: BD)
  Receive Date: 20200604
  Receipt Date: 20200610
  Transmission Date: 20201105
  Serious: Yes (Death)
  Sender: FDA-Public Use
  Company Number: NVSC2020BD155072

PATIENT
  Age: 66 Year
  Sex: Female
  Weight: 80 kg

DRUGS (1)
  1. ACLASTA [Suspect]
     Active Substance: ZOLEDRONIC ACID
     Indication: OSTEOPOROSIS
     Dosage: 1 DF (5/100)
     Route: 042
     Dates: start: 20190621

REACTIONS (1)
  - Death [Fatal]

NARRATIVE: CASE EVENT DATE: 20190625
